FAERS Safety Report 24120799 (Version 2)
Quarter: 2024Q3

REPORT INFORMATION
  Report Type: Spontaneous
  Country: US (occurrence: US)
  Receive Date: 20240722
  Receipt Date: 20240923
  Transmission Date: 20241017
  Serious: No
  Sender: ABBVIE
  Company Number: US-ABBVIE-5843568

PATIENT
  Age: 76 Year
  Sex: Female

DRUGS (11)
  1. BOTOX COSMETIC [Suspect]
     Active Substance: ONABOTULINUMTOXINA
     Indication: Skin wrinkling
     Dosage: TIME INTERVAL: AS NECESSARY: ONCE EVERY 6 TO 7 MONTHS
     Route: 030
     Dates: start: 20221109, end: 20221109
  2. BOTOX COSMETIC [Suspect]
     Active Substance: ONABOTULINUMTOXINA
     Indication: Skin wrinkling
     Dosage: TIME INTERVAL: AS NECESSARY: ONCE EVERY 6 TO 7 MONTHS
     Route: 030
     Dates: start: 20240703, end: 20240703
  3. BOTOX COSMETIC [Suspect]
     Active Substance: ONABOTULINUMTOXINA
     Indication: Skin wrinkling
     Dosage: TIME INTERVAL: AS NECESSARY: ONCE EVERY 6 TO 7 MONTHS
     Route: 030
     Dates: start: 20221109, end: 20221109
  4. BOTOX COSMETIC [Suspect]
     Active Substance: ONABOTULINUMTOXINA
     Indication: Skin wrinkling
     Dosage: TIME INTERVAL: AS NECESSARY: ONCE EVERY 6 TO 7 MONTHS
     Route: 030
     Dates: start: 20240703, end: 20240703
  5. TRAMADOL [Concomitant]
     Active Substance: TRAMADOL\TRAMADOL HYDROCHLORIDE
     Indication: Pain
  6. EZETIMIBE [Concomitant]
     Active Substance: EZETIMIBE
     Indication: Product used for unknown indication
  7. ALPRAZOLAM [Concomitant]
     Active Substance: ALPRAZOLAM
     Indication: Anxiety
  8. REPATHA [Concomitant]
     Active Substance: EVOLOCUMAB
     Indication: Blood cholesterol increased
  9. LINZESS [Concomitant]
     Active Substance: LINACLOTIDE
     Indication: Irritable bowel syndrome
  10. PREDNISONE [Concomitant]
     Active Substance: PREDNISONE
     Indication: Swelling face
     Dosage: TAPERED DOSE
     Dates: start: 20240708
  11. PREDNISONE [Concomitant]
     Active Substance: PREDNISONE
     Indication: Swelling face
     Dosage: TAPERED DOSE
     Dates: start: 20240708

REACTIONS (4)
  - Swelling face [Recovering/Resolving]
  - Headache [Recovering/Resolving]
  - Vision blurred [Recovering/Resolving]
  - Myalgia [Recovering/Resolving]

NARRATIVE: CASE EVENT DATE: 20240704
